FAERS Safety Report 15767495 (Version 3)
Quarter: 2025Q2

REPORT INFORMATION
  Report Type: Report from Study
  Country: CA (occurrence: CA)
  Receive Date: 20181227
  Receipt Date: 20250619
  Transmission Date: 20250716
  Serious: Yes (Hospitalization, Other)
  Sender: TAKEDA
  Company Number: CA-TAKEDA-2018TUS006134

PATIENT
  Age: 24 Year
  Sex: Female

DRUGS (9)
  1. VEDOLIZUMAB [Suspect]
     Active Substance: VEDOLIZUMAB
     Indication: Colitis ulcerative
  2. VEDOLIZUMAB [Suspect]
     Active Substance: VEDOLIZUMAB
  3. VEDOLIZUMAB [Suspect]
     Active Substance: VEDOLIZUMAB
     Dosage: 300 MILLIGRAM, Q4WEEKS
     Dates: start: 20180912
  4. VEDOLIZUMAB [Suspect]
     Active Substance: VEDOLIZUMAB
     Dosage: 300 MILLIGRAM, Q4WEEKS
  5. VEDOLIZUMAB [Suspect]
     Active Substance: VEDOLIZUMAB
     Dosage: 300 MILLIGRAM, Q4WEEKS
     Dates: end: 20190307
  6. PENICILLIN V [Suspect]
     Active Substance: PENICILLIN V
     Indication: Liver disorder
     Dosage: 300 MILLIGRAM, BID
  7. TACROLIMUS [Concomitant]
     Active Substance: TACROLIMUS
     Dosage: 1.5 MG, BID
  8. URSODIOL [Concomitant]
     Active Substance: URSODIOL
     Dosage: UNK UNK, QD
  9. REMICADE [Concomitant]
     Active Substance: INFLIXIMAB

REACTIONS (3)
  - Colitis ulcerative [Unknown]
  - Cholangitis [Unknown]
  - Off label use [Unknown]

NARRATIVE: CASE EVENT DATE: 20180125
